FAERS Safety Report 5630229-6 (Version None)
Quarter: 2008Q1

REPORT INFORMATION
  Report Type: 
  Country: None (occurrence: None)
  Receive Date: 20080219
  Receipt Date: 20080212
  Transmission Date: 20080703
  Serious: Yes (Disabling, Other)
  Sender: FDA-Public Use
  Company Number: PHBS2007JP20899

PATIENT
  Age: 53 Year
  Sex: Male
  Weight: 72 kg

DRUGS (1)
  1. ZOMETA [Suspect]
     Indication: METASTASES TO BONE
     Dosage: UNK, UNK
     Route: 042
     Dates: start: 20071113, end: 20071113

REACTIONS (6)
  - LOOSE TOOTH [None]
  - OSTEONECROSIS [None]
  - PERIODONTITIS [None]
  - THERAPEUTIC PROCEDURE [None]
  - TOOTH DISORDER [None]
  - TOOTH FRACTURE [None]
